FAERS Safety Report 5293876-X (Version None)
Quarter: 2007Q2

REPORT INFORMATION
  Report Type: 
  Country: None (occurrence: None)
  Receive Date: 20070405
  Receipt Date: 20070321
  Transmission Date: 20071010
  Serious: Yes (Hospitalization, Disabling)
  Sender: FDA-Public Use
  Company Number: 2007S1000078

PATIENT
  Age: 62 Year
  Sex: Male

DRUGS (3)
  1. ACITRETIN [Suspect]
     Indication: PSORIASIS
     Dosage: ; QD;
     Dates: start: 20050320, end: 20060911
  2. MORPHINE [Suspect]
     Indication: PAIN
  3. PAINKILLERS NOS [Concomitant]

REACTIONS (17)
  - ARTHRITIS [None]
  - BONE PAIN [None]
  - CALCINOSIS [None]
  - CONSTIPATION [None]
  - DEHYDRATION [None]
  - DIARRHOEA [None]
  - DISCOMFORT [None]
  - DRUG INEFFECTIVE [None]
  - ENTHESOPATHY [None]
  - GAIT DISTURBANCE [None]
  - INSOMNIA [None]
  - MUSCULOSKELETAL STIFFNESS [None]
  - MYOSITIS [None]
  - NECK PAIN [None]
  - ORAL INTAKE REDUCED [None]
  - PAIN [None]
  - TENDONITIS [None]
